FAERS Safety Report 19607913 (Version 1)
Quarter: 2021Q3

REPORT INFORMATION
  Report Type: Spontaneous
  Country: PK (occurrence: PK)
  Receive Date: 20210726
  Receipt Date: 20210726
  Transmission Date: 20211014
  Serious: Yes (Death)
  Sender: FDA-Public Use
  Company Number: PK-NOVOPROD-830716

PATIENT
  Sex: Female

DRUGS (1)
  1. MIXTARD 30 [Suspect]
     Active Substance: INSULIN HUMAN
     Indication: DIABETES MELLITUS
     Dosage: 58 IU, QD (30+28) UNITS
     Route: 058
     Dates: start: 20050706, end: 20201223

REACTIONS (1)
  - COVID-19 [Fatal]
